FAERS Safety Report 9233267 (Version 4)
Quarter: 2013Q3

REPORT INFORMATION
  Report Type: Spontaneous
  Country: US (occurrence: US)
  Receive Date: 20130416
  Receipt Date: 20130819
  Transmission Date: 20140515
  Serious: Yes (Hospitalization, Other)
  Sender: FDA-Public Use
  Company Number: US-PFIZER INC-2013116782

PATIENT
  Age: 35 Year
  Sex: Female
  Weight: 65.31 kg

DRUGS (6)
  1. LYRICA [Suspect]
     Indication: FIBROMYALGIA
     Dosage: 200 MG, 3X/DAY
     Dates: start: 201104
  2. LYRICA [Suspect]
     Indication: SCIATICA
     Dosage: 200 MG, 3X/DAY
     Dates: start: 201105
  3. LYRICA [Suspect]
     Dosage: 150 MG, 2X/DAY
     Dates: start: 201303
  4. EFFEXOR [Suspect]
     Indication: DEPRESSION
     Dosage: 150 MG/DAY
     Dates: start: 20121101, end: 201303
  5. RISPERIDONE [Suspect]
     Indication: INSOMNIA
     Dosage: 1 MG/DAY
     Dates: start: 20130103, end: 201303
  6. OXYCONTIN [Suspect]
     Indication: PAIN
     Dosage: 30 MG, 4X/DAY
     Dates: start: 20120730, end: 201303

REACTIONS (6)
  - Hemiplegia [Unknown]
  - Depression [Unknown]
  - Migraine [Unknown]
  - Diplopia [Recovered/Resolved]
  - Aphonia [Recovering/Resolving]
  - Intentional drug misuse [Unknown]
